FAERS Safety Report 4881642-6 (Version None)
Quarter: 2006Q1

REPORT INFORMATION
  Report Type: 
  Country: None (occurrence: None)
  Receive Date: 20060112
  Receipt Date: 20051227
  Transmission Date: 20060701
  Serious: No
  Sender: FDA-Public Use
  Company Number: 2005BI019487

PATIENT
  Age: 35 Year
  Sex: Female
  Weight: 113.3993 kg

DRUGS (6)
  1. AVONEX [Suspect]
     Indication: MULTIPLE SCLEROSIS
     Dosage: IM
     Route: 030
     Dates: start: 20020815
  2. ANTIBIOTIC [Concomitant]
  3. INSULIN PUMP [Concomitant]
  4. AMITRIPTYLINE HCL [Concomitant]
  5. OXYTROL [Concomitant]
  6. TYLENOL (CAPLET) [Concomitant]

REACTIONS (2)
  - ANIMAL SCRATCH [None]
  - VARICOSE VEIN RUPTURED [None]
